FAERS Safety Report 14907200 (Version 1)
Quarter: 2018Q2

REPORT INFORMATION
  Report Type: Spontaneous
  Country: ES (occurrence: ES)
  Receive Date: 20180517
  Receipt Date: 20180517
  Transmission Date: 20180711
  Serious: Yes (Death, Other)
  Sender: FDA-Public Use
  Company Number: ES-SUN PHARMACEUTICAL INDUSTRIES LTD-2018RR-173007

PATIENT
  Age: 64 Year
  Sex: Female

DRUGS (2)
  1. GEMCITABINE [Suspect]
     Active Substance: GEMCITABINE\GEMCITABINE HYDROCHLORIDE
     Indication: METASTASES TO LIVER
     Dosage: 800 MG/M2 ON DAYS 1 AND 8 EVERY 21 DAYS
     Route: 065
     Dates: start: 201212, end: 201306
  2. CARBOPLATIN. [Suspect]
     Active Substance: CARBOPLATIN
     Indication: METASTASES TO LIVER
     Dosage: AUC 4 ON DAY 1 EVERY 21 DAYS
     Route: 065
     Dates: start: 201212, end: 201306

REACTIONS (3)
  - Disease progression [Not Recovered/Not Resolved]
  - Thrombocytopenia [Unknown]
  - Asthenia [Unknown]
